FAERS Safety Report 4836606-5 (Version None)
Quarter: 2005Q4

REPORT INFORMATION
  Report Type: 
  Country: None (occurrence: None)
  Receive Date: 20051121
  Receipt Date: 20051109
  Transmission Date: 20060501
  Serious: Yes (Other)
  Sender: FDA-Public Use
  Company Number: 2005153494

PATIENT
  Age: 14 Year
  Sex: Male
  Weight: 81.6475 kg

DRUGS (1)
  1. DRAMAMINE [Suspect]
     Indication: ACCIDENTAL EXPOSURE
     Dosage: 12 TABLETS ONCE, ORAL
     Route: 048
     Dates: start: 20051109, end: 20051109

REACTIONS (3)
  - ACCIDENTAL EXPOSURE [None]
  - FEELING ABNORMAL [None]
  - MEMORY IMPAIRMENT [None]
